FAERS Safety Report 6766395-9 (Version None)
Quarter: 2010Q2

REPORT INFORMATION
  Report Type: 
  Country: None (occurrence: None)
  Receive Date: 20100611
  Receipt Date: 20100603
  Transmission Date: 20101027
  Serious: Yes (Other)
  Sender: FDA-Public Use
  Company Number: CA-JNJFOC-20070902594

PATIENT
  Sex: Male

DRUGS (10)
  1. TRAMADOL HCL [Suspect]
     Indication: BACK PAIN
     Dosage: MORNING
     Route: 065
  2. TRAMADOL HCL [Suspect]
     Indication: PAIN
     Dosage: MORNING
     Route: 065
  3. TRAMADOL HCL [Suspect]
     Indication: MYALGIA
     Dosage: MORNING
     Route: 065
  4. TRAMADOL HCL [Suspect]
     Indication: RADICULAR PAIN
     Dosage: MORNING
     Route: 065
  5. VOLTAREN [Concomitant]
     Route: 065
  6. CYCLOPRINE [Concomitant]
  7. PROCTOSONE [Concomitant]
     Indication: HAEMORRHOIDS
     Route: 065
  8. LOMOTIL [Concomitant]
     Route: 065
  9. NEXIUM [Concomitant]
     Indication: GASTRIC DISORDER
     Route: 065
  10. COUGH SYRUP [Concomitant]
     Route: 065

REACTIONS (20)
  - AMNESIA [None]
  - ANXIETY [None]
  - CONSTIPATION [None]
  - DIARRHOEA [None]
  - DIZZINESS [None]
  - DRY THROAT [None]
  - DYSARTHRIA [None]
  - FATIGUE [None]
  - HEADACHE [None]
  - HEART RATE INCREASED [None]
  - HOMICIDAL IDEATION [None]
  - HYPERMETROPIA [None]
  - INCREASED APPETITE [None]
  - INITIAL INSOMNIA [None]
  - MYDRIASIS [None]
  - NASAL DRYNESS [None]
  - OVERDOSE [None]
  - SLEEP DISORDER [None]
  - SOMNOLENCE [None]
  - SUICIDAL IDEATION [None]
